FAERS Safety Report 9382181 (Version 2)
Quarter: 2013Q3

REPORT INFORMATION
  Report Type: Spontaneous
  Country: US (occurrence: US)
  Receive Date: 20130703
  Receipt Date: 20130711
  Transmission Date: 20140515
  Serious: Yes (Other)
  Sender: FDA-Public Use
  Company Number: US-AMGEN-USASP2013038808

PATIENT
  Age: 82 Year
  Sex: Female

DRUGS (13)
  1. ENBREL [Suspect]
     Indication: SJOGREN^S SYNDROME
     Dosage: 50 MG, QWK
     Route: 058
     Dates: start: 20130502
  2. XANAX [Concomitant]
     Dosage: 0.25 MG, UNK
  3. PLAQUENIL                          /00072602/ [Concomitant]
     Dosage: 200 MG, UNK
  4. PREDNISONE [Concomitant]
     Dosage: 5 MG, UNK
  5. SYSTANE                            /00678601/ [Concomitant]
     Dosage: 0.3 TO 0.4 %
  6. PRAVASTATIN SODIUM [Concomitant]
     Dosage: 80 MG, UNK
  7. ASPIRIN [Concomitant]
     Dosage: 325 MG, UNK
  8. BYSTOLIC [Concomitant]
     Dosage: 5 MG, UNK
  9. CITRACAL                           /00751520/ [Concomitant]
     Dosage: UNK
  10. VITAMIN D                          /00107901/ [Concomitant]
     Dosage: UNK
  11. MAGNESIUM [Concomitant]
     Dosage: UNK
  12. OMEGA 3 FISH OIL [Concomitant]
     Dosage: UNK
  13. VITAMIN D3 [Concomitant]
     Dosage: 1000 UNIT, UNK

REACTIONS (6)
  - Anaemia [Recovering/Resolving]
  - Ear haemorrhage [Unknown]
  - Asthenia [Recovering/Resolving]
  - Fatigue [Unknown]
  - Ear infection [Recovered/Resolved]
  - Diarrhoea [Recovered/Resolved]
